FAERS Safety Report 6333346-0 (Version None)
Quarter: 2009Q3

REPORT INFORMATION
  Report Type: 
  Country: None (occurrence: None)
  Receive Date: 20090828
  Receipt Date: 20090820
  Transmission Date: 20100115
  Serious: Yes (Other)
  Sender: FDA-Public Use
  Company Number: US-ABBOTT-09P-163-0593419-00

PATIENT
  Sex: Female
  Weight: 56.296 kg

DRUGS (7)
  1. HUMIRA [Suspect]
     Indication: RHEUMATOID ARTHRITIS
     Dates: start: 20070101, end: 20090601
  2. LIALDA [Concomitant]
     Indication: COLITIS
  3. PAXIL [Concomitant]
     Indication: DEPRESSION
  4. KADIAN [Concomitant]
     Indication: PAIN
  5. DARVON [Concomitant]
     Indication: PAIN
  6. LEFLUNOMIDE [Concomitant]
     Indication: RHEUMATOID ARTHRITIS
  7. METOPROLOL [Concomitant]
     Indication: HYPERTENSION

REACTIONS (5)
  - CELLULITIS ORBITAL [None]
  - ERYTHEMA [None]
  - FEELING HOT [None]
  - OEDEMA PERIPHERAL [None]
  - OSTEOMYELITIS [None]
